FAERS Safety Report 17641326 (Version 1)
Quarter: 2020Q2

REPORT INFORMATION
  Report Type: Report from Study
  Country: US (occurrence: US)
  Receive Date: 20200407
  Receipt Date: 20200407
  Transmission Date: 20200713
  Serious: Yes (Other)
  Sender: FDA-Public Use
  Company Number: US-009507513-1809USA008005

PATIENT
  Age: 86 Year
  Sex: Female
  Weight: 53.52 kg

DRUGS (4)
  1. GABAPENTIN. [Concomitant]
     Active Substance: GABAPENTIN
     Indication: NEUROPATHY PERIPHERAL
     Dosage: 100 MILLIGRAM, BEFORE BED
  2. PRINIVIL [Concomitant]
     Active Substance: LISINOPRIL
     Dosage: 5 MILLIGRAM, IN MORNING
  3. PEMBROLIZUMAB. [Suspect]
     Active Substance: PEMBROLIZUMAB
     Indication: NON-SMALL CELL LUNG CANCER STAGE IV
     Dosage: UNK, EVERY 3 WEEKS; STRENGTH 100 MG; TAKES 35 MINUTES
     Route: 042
     Dates: start: 20180814
  4. DECADRON [Suspect]
     Active Substance: DEXAMETHASONE
     Indication: INFLAMMATION
     Dosage: UNSPECIFIED DOSE
     Route: 048
     Dates: start: 2018

REACTIONS (30)
  - Feeling abnormal [Unknown]
  - Asthenia [Unknown]
  - Fatigue [Not Recovered/Not Resolved]
  - Stress [Unknown]
  - Weight increased [Not Recovered/Not Resolved]
  - Increased appetite [Not Recovered/Not Resolved]
  - Weight decreased [Recovering/Resolving]
  - Drug ineffective [Unknown]
  - Nausea [Recovering/Resolving]
  - Pruritus [Not Recovered/Not Resolved]
  - Throat clearing [Not Recovered/Not Resolved]
  - Adverse drug reaction [Unknown]
  - Abdominal pain upper [Recovering/Resolving]
  - Constipation [Recovered/Resolved]
  - Constipation [Recovering/Resolving]
  - Decreased appetite [Recovering/Resolving]
  - Cough [Recovered/Resolved]
  - Malignant neoplasm progression [Not Recovered/Not Resolved]
  - Bronchitis [Unknown]
  - Alopecia [Recovering/Resolving]
  - Dyspnoea [Recovered/Resolved]
  - Adverse event [Unknown]
  - Increased appetite [Recovered/Resolved]
  - Depression [Not Recovered/Not Resolved]
  - Insomnia [Unknown]
  - Weight decreased [Recovering/Resolving]
  - Dizziness [Unknown]
  - Dizziness [Recovering/Resolving]
  - Vomiting [Recovering/Resolving]
  - Decreased appetite [Not Recovered/Not Resolved]

NARRATIVE: CASE EVENT DATE: 2018
